FAERS Safety Report 21048486 (Version 2)
Quarter: 2022Q3

REPORT INFORMATION
  Report Type: Spontaneous
  Country: PL (occurrence: PL)
  Receive Date: 20220706
  Receipt Date: 20220714
  Transmission Date: 20221027
  Serious: Yes (Death, Hospitalization, Other)
  Sender: FDA-Public Use
  Company Number: PL-GILEAD-2022-0588163

PATIENT
  Age: 54 Year
  Sex: Male

DRUGS (5)
  1. VEKLURY [Suspect]
     Active Substance: REMDESIVIR
     Indication: COVID-19
     Dosage: UNK
     Route: 065
     Dates: start: 202104, end: 202104
  2. VEKLURY [Suspect]
     Active Substance: REMDESIVIR
     Dosage: UNK
     Route: 065
     Dates: start: 202104, end: 202104
  3. UNSPECIFIED INGREDIENT [Concomitant]
     Active Substance: UNSPECIFIED INGREDIENT
  4. HUMAN PLASMA [Concomitant]
     Active Substance: HUMAN PLASMA
  5. OXYGEN [Concomitant]
     Active Substance: OXYGEN

REACTIONS (5)
  - Lung disorder [Fatal]
  - Pneumothorax [Unknown]
  - Dyspnoea [Unknown]
  - Pyrexia [Unknown]
  - Hypertransaminasaemia [Unknown]

NARRATIVE: CASE EVENT DATE: 20210401
